FAERS Safety Report 20540711 (Version 1)
Quarter: 2022Q1

REPORT INFORMATION
  Report Type: Spontaneous
  Country: JP (occurrence: JP)
  Receive Date: 20220302
  Receipt Date: 20220302
  Transmission Date: 20220423
  Serious: Yes (Hospitalization)
  Sender: FDA-Public Use
  Company Number: JP-BAYER-2020-199631

PATIENT
  Age: 98 Year
  Sex: Female
  Weight: 33 kg

DRUGS (9)
  1. XARELTO [Suspect]
     Active Substance: RIVAROXABAN
     Indication: Deep vein thrombosis
     Dosage: 10 MG, QD
     Route: 048
     Dates: start: 20190806, end: 20200913
  2. BENIDIPINE HYDROCHLORIDE [Concomitant]
     Active Substance: BENIDIPINE HYDROCHLORIDE
     Dosage: DAILY DOSE 4 MG
     Route: 048
     Dates: end: 20200913
  3. DONEPEZIL HYDROCHLORIDE [Concomitant]
     Active Substance: DONEPEZIL HYDROCHLORIDE
     Dosage: DAILY DOSE 5 MG
     Route: 048
     Dates: end: 20200913
  4. MIRABEGRON [Concomitant]
     Active Substance: MIRABEGRON
     Dosage: DAILY DOSE 50 MG
     Route: 048
     Dates: end: 20200913
  5. VESICARE [Concomitant]
     Active Substance: SOLIFENACIN SUCCINATE
     Dosage: DAILY DOSE 5 MG
     Route: 048
     Dates: end: 20200913
  6. BELSOMRA [Concomitant]
     Active Substance: SUVOREXANT
     Dosage: DAILY DOSE 15 MG
     Route: 048
     Dates: end: 20200913
  7. LUNESTA [Concomitant]
     Active Substance: ESZOPICLONE
     Dosage: DAILY DOSE 1 MG
     Route: 048
     Dates: end: 20200913
  8. MAGNESIUM OXIDE [Concomitant]
     Active Substance: MAGNESIUM OXIDE
     Dosage: DAILY DOSE 660 MG
     Route: 048
     Dates: end: 20200913
  9. MESALAMINE [Concomitant]
     Active Substance: MESALAMINE
     Dosage: DAILY DOSE 1200 MG
     Route: 048
     Dates: end: 20200913

REACTIONS (2)
  - Subcutaneous haematoma [Recovering/Resolving]
  - Pain [Recovering/Resolving]

NARRATIVE: CASE EVENT DATE: 20200913
